FAERS Safety Report 12927364 (Version 1)
Quarter: 2016Q4

REPORT INFORMATION
  Report Type: Spontaneous
  Country: US (occurrence: US)
  Receive Date: 20161109
  Receipt Date: 20161109
  Transmission Date: 20170207
  Serious: No
  Sender: FDA-Public Use
  Company Number: US-ALLERGAN-1656139US

PATIENT
  Age: 64 Year
  Sex: Female

DRUGS (5)
  1. ALPHAGAN P [Suspect]
     Active Substance: BRIMONIDINE TARTRATE
     Indication: INTRAOCULAR PRESSURE INCREASED
     Dosage: 2 GTT, TID
     Route: 047
     Dates: start: 20160506, end: 20160506
  2. REFRESH TEARS [Suspect]
     Active Substance: CARBOXYMETHYLCELLULOSE SODIUM
     Indication: VISION BLURRED
     Dosage: UNK UNK, PRN
     Route: 047
  3. FLONASE [Concomitant]
     Active Substance: FLUTICASONE PROPIONATE
     Indication: SEASONAL ALLERGY
     Dosage: UNK UNK, PRN
     Route: 045
  4. RETIN-A [Concomitant]
     Active Substance: TRETINOIN
     Indication: ROSACEA
     Dosage: UNK UNK, PRN
     Route: 061
     Dates: start: 20160505
  5. PEPCID AC [Concomitant]
     Active Substance: FAMOTIDINE
     Indication: GASTROOESOPHAGEAL REFLUX DISEASE
     Dosage: UNK UNK, PRN
     Route: 048

REACTIONS (3)
  - Mydriasis [Not Recovered/Not Resolved]
  - Vision blurred [Unknown]
  - Dysgeusia [Not Recovered/Not Resolved]

NARRATIVE: CASE EVENT DATE: 20160506
